FAERS Safety Report 5429157-0 (Version None)
Quarter: 2007Q3

REPORT INFORMATION
  Report Type: 
  Country: None (occurrence: None)
  Receive Date: 20070827
  Receipt Date: 20070818
  Transmission Date: 20080115
  Serious: Yes (Hospitalization)
  Sender: FDA-Public Use
  Company Number: 2007SP008891

PATIENT
  Age: 54 Year
  Sex: Male

DRUGS (4)
  1. PEG-INTRON [Suspect]
     Indication: HEPATITIS C
     Dosage: SC
     Route: 058
     Dates: start: 20060101, end: 20060101
  2. PEG-INTRON [Suspect]
     Indication: HEPATITIS C
     Dosage: SC
     Route: 058
     Dates: start: 20070511
  3. REBETOL [Suspect]
     Indication: HEPATITIS C
     Dosage: PO
     Route: 048
     Dates: start: 20060101, end: 20060101
  4. REBETOL [Suspect]
     Indication: HEPATITIS C
     Dosage: PO
     Route: 048
     Dates: start: 20070511

REACTIONS (9)
  - ANXIETY [None]
  - APHASIA [None]
  - ARTHRALGIA [None]
  - DELIRIUM [None]
  - DRUG INEFFECTIVE [None]
  - INCOHERENT [None]
  - JAUNDICE [None]
  - PANCREATITIS [None]
  - VOMITING [None]
